FAERS Safety Report 9580997 (Version 2)
Quarter: 2013Q4

REPORT INFORMATION
  Report Type: Report from Study
  Country: GB (occurrence: GB)
  Receive Date: 20131002
  Receipt Date: 20131002
  Transmission Date: 20140711
  Serious: Yes (Hospitalization, Other)
  Sender: FDA-Public Use
  Company Number: GB-ABBVIE-13P-167-1054454-00

PATIENT
  Age: 53 Year
  Sex: Female

DRUGS (1)
  1. HUMIRA [Suspect]
     Indication: RHEUMATOID ARTHRITIS
     Route: 058
     Dates: start: 201212, end: 201304

REACTIONS (4)
  - Wheelchair user [Recovering/Resolving]
  - Synovial cyst [Recovering/Resolving]
  - Deep vein thrombosis [Recovering/Resolving]
  - Arthritis infective [Not Recovered/Not Resolved]
